FAERS Safety Report 7278907-X (Version None)
Quarter: 2011Q1

REPORT INFORMATION
  Report Type: 
  Country: None (occurrence: None)
  Receive Date: 20110207
  Receipt Date: 20110128
  Transmission Date: 20110831
  Serious: Yes (Other)
  Sender: FDA-Public Use
  Company Number: US-PURDUE-USA-2010-0048797

PATIENT
  Sex: Female
  Weight: 65.76 kg

DRUGS (2)
  1. OXYCONTIN [Suspect]
     Indication: PAIN
     Dosage: 10 MG, UNK
     Dates: start: 20100101
  2. OXYCONTIN [Suspect]
     Indication: POST LAMINECTOMY SYNDROME

REACTIONS (3)
  - INADEQUATE ANALGESIA [None]
  - PALPITATIONS [None]
  - PAIN [None]
